FAERS Safety Report 7012160-7 (Version None)
Quarter: 2010Q3

REPORT INFORMATION
  Report Type: 
  Country: None (occurrence: None)
  Receive Date: 20100924
  Receipt Date: 20100709
  Transmission Date: 20110219
  Serious: No
  Sender: FDA-Public Use
  Company Number: US-TYCO HEALTHCARE/MALLINCKRODT-T201001633

PATIENT

DRUGS (2)
  1. TECHNETIUM TC 99M SESTAMIBI [Suspect]
     Dosage: UNK
     Dates: start: 20100709, end: 20100709
  2. TECHNETIUM TC-99M [Concomitant]
     Dosage: 810 MCI/4 ML
     Dates: start: 20100709, end: 20100709

REACTIONS (1)
  - DRUG INEFFECTIVE [None]
